FAERS Safety Report 12535457 (Version 1)
Quarter: 2016Q3

REPORT INFORMATION
  Report Type: Spontaneous
  Country: US (occurrence: None)
  Receive Date: 20160706
  Receipt Date: 20160706
  Transmission Date: 20161109
  Serious: Yes (Hospitalization, Disabling)
  Sender: FDA-Public Use
  Company Number: None

PATIENT
  Age: 60 Year
  Sex: Male
  Weight: 86.18 kg

DRUGS (14)
  1. BYSTOLIC [Concomitant]
     Active Substance: NEBIVOLOL HYDROCHLORIDE
  2. CIPROFLAXCIN [Concomitant]
     Active Substance: CIPROFLOXACIN
  3. XARELTO [Concomitant]
     Active Substance: RIVAROXABAN
  4. TAMSULOSIN [Concomitant]
     Active Substance: TAMSULOSIN
  5. INVOKANA [Suspect]
     Active Substance: CANAGLIFLOZIN
     Indication: TYPE 2 DIABETES MELLITUS
     Route: 048
     Dates: start: 20151105, end: 20160610
  6. BENICAR [Concomitant]
     Active Substance: OLMESARTAN MEDOXOMIL
  7. CLOPIDOGREL [Concomitant]
     Active Substance: CLOPIDOGREL BISULFATE
  8. PANTOPRAZOLE [Concomitant]
     Active Substance: PANTOPRAZOLE SODIUM
  9. JANUVIA [Concomitant]
     Active Substance: SITAGLIPTIN PHOSPHATE
  10. NIFEDICALXL [Concomitant]
  11. CRESTOR [Concomitant]
     Active Substance: ROSUVASTATIN CALCIUM
  12. AMIODARONEHCL [Concomitant]
  13. FINASTERIDE. [Concomitant]
     Active Substance: FINASTERIDE
  14. MELATONINE [Concomitant]
     Active Substance: MELATONIN

REACTIONS (3)
  - Prostatic disorder [None]
  - Cystitis [None]
  - Dysuria [None]

NARRATIVE: CASE EVENT DATE: 20160607
